FAERS Safety Report 9247869 (Version 2)
Quarter: 2014Q1

REPORT INFORMATION
  Report Type: Spontaneous
  Country: US (occurrence: None)
  Receive Date: 20130305
  Receipt Date: 20140306
  Transmission Date: 20141002
  Serious: Yes (Other)
  Sender: FDA-Public Use
  Company Number: 163-21880-12062258

PATIENT
  Age: 80 Year
  Sex: Female

DRUGS (2)
  1. REVLIMID [Suspect]
     Indication: PLASMA CELL MYELOMA
     Dosage: 25MG, 1 IN 1 D, PO
     Route: 048
     Dates: start: 200910
  2. LEVOTHYROXINE  (LEVOTHYROXINE) [Concomitant]

REACTIONS (3)
  - Deep vein thrombosis [None]
  - Neuropathy peripheral [None]
  - Muscle spasms [None]
